FAERS Safety Report 17308228 (Version 3)
Quarter: 2020Q1

REPORT INFORMATION
  Report Type: Spontaneous
  Country: FR (occurrence: FR)
  Receive Date: 20200123
  Receipt Date: 20200317
  Transmission Date: 20200409
  Serious: Yes (Hospitalization)
  Sender: FDA-Public Use
  Company Number: FR-MERZ PHARMACEUTICALS GMBH-20-00259

PATIENT
  Age: 72 Year
  Sex: Female

DRUGS (2)
  1. ASCLERA [Suspect]
     Active Substance: POLIDOCANOL
     Indication: VARICOSE VEIN
     Route: 042
     Dates: start: 20190115, end: 20190115
  2. OXAZEPAM. [Concomitant]
     Active Substance: OXAZEPAM

REACTIONS (8)
  - Enterococcal sepsis [Recovered/Resolved]
  - Skin plaque [Recovered/Resolved]
  - Chest discomfort [Recovered/Resolved]
  - Petechiae [Recovered/Resolved]
  - Anaphylactic reaction [Recovered/Resolved]
  - Chills [Recovered/Resolved]
  - Pyrexia [Recovered/Resolved]
  - Malaise [Recovered/Resolved]

NARRATIVE: CASE EVENT DATE: 20190115
